FAERS Safety Report 9159002 (Version 1)
Quarter: 2013Q1

REPORT INFORMATION
  Report Type: Spontaneous
  Country: US (occurrence: US)
  Receive Date: 20130313
  Receipt Date: 20130313
  Transmission Date: 20140127
  Serious: Yes (Hospitalization)
  Sender: FDA-Public Use
  Company Number: US-BIOGENIDEC-2013BI022065

PATIENT
  Sex: Female

DRUGS (2)
  1. TYSABRI [Suspect]
     Indication: MULTIPLE SCLEROSIS
     Route: 042
     Dates: start: 20121106
  2. AVONEX [Concomitant]
     Indication: MULTIPLE SCLEROSIS
     Route: 030
     Dates: start: 20030420

REACTIONS (5)
  - Pneumonia aspiration [Recovered/Resolved]
  - Abasia [Not Recovered/Not Resolved]
  - Blister [Not Recovered/Not Resolved]
  - Cystitis [Recovered/Resolved]
  - Urinary retention [Not Recovered/Not Resolved]
